FAERS Safety Report 23659280 (Version 1)
Quarter: 2024Q1

REPORT INFORMATION
  Report Type: Spontaneous
  Country: US (occurrence: US)
  Receive Date: 20240321
  Receipt Date: 20240321
  Transmission Date: 20240410
  Serious: No
  Sender: FDA-Public Use
  Company Number: US-AMGEN-USASP2024056289

PATIENT
  Age: 75 Year
  Sex: Male

DRUGS (2)
  1. REPATHA [Suspect]
     Active Substance: EVOLOCUMAB
     Indication: Atrioventricular block
     Dosage: 140 MILLIGRAM/ML
     Route: 065
     Dates: start: 20240219
  2. REPATHA [Suspect]
     Active Substance: EVOLOCUMAB
     Indication: Cardiac operation
     Dosage: UNK
     Route: 065

REACTIONS (4)
  - Incorrect disposal of product [Unknown]
  - Accidental exposure to product [Unknown]
  - Device difficult to use [Unknown]
  - Drug dose omission by device [Unknown]

NARRATIVE: CASE EVENT DATE: 20240304
